FAERS Safety Report 9278388 (Version 2)
Quarter: 2013Q2

REPORT INFORMATION
  Report Type: Spontaneous
  Country: US (occurrence: US)
  Receive Date: 20130508
  Receipt Date: 20130528
  Transmission Date: 20140414
  Serious: Yes (Life-Threatening, Hospitalization)
  Sender: FDA-Public Use
  Company Number: US-BAYER-2013-056112

PATIENT
  Age: 77 Year
  Sex: Female
  Weight: 58 kg

DRUGS (17)
  1. XARELTO [Suspect]
     Indication: CEREBROVASCULAR ACCIDENT PROPHYLAXIS
     Dosage: 20 MG, QD
     Route: 048
     Dates: start: 20130221, end: 20130303
  2. XARELTO [Interacting]
     Indication: ATRIAL FIBRILLATION
  3. WARFARIN [Interacting]
     Indication: ATRIAL FIBRILLATION
     Dosage: UNK
     Route: 065
     Dates: start: 20130118, end: 20130220
  4. ACETYLSALICYLIC ACID({=100 MG) [Interacting]
     Indication: PRODUCT USED FOR UNKNOWN INDICATION
     Dosage: 81 MG, UNK
     Route: 048
  5. PREMARIN [Concomitant]
     Dosage: .625 MG, Q72HR
     Route: 048
  6. LOSARTAN [Concomitant]
     Dosage: 50
     Route: 048
  7. LOSARTAN [Concomitant]
  8. LOSARTAN [Concomitant]
  9. HCTZ [Concomitant]
     Dosage: 12.5
     Route: 048
  10. HCTZ [Concomitant]
  11. HCTZ [Concomitant]
  12. MESALAMINE [Concomitant]
     Dosage: .375 G, BID
     Route: 048
  13. FISH OIL [Concomitant]
     Dosage: UNK
     Route: 065
  14. FISH OIL [Concomitant]
  15. FISH OIL [Concomitant]
     Route: 065
  16. FISH OIL [Concomitant]
  17. FISH OIL [Concomitant]

REACTIONS (2)
  - Chronic gastrointestinal bleeding [Recovering/Resolving]
  - Haemorrhagic anaemia [Unknown]
